FAERS Safety Report 7515751-X (Version None)
Quarter: 2011Q2

REPORT INFORMATION
  Report Type: 
  Country: None (occurrence: None)
  Receive Date: 20110601
  Receipt Date: 20100729
  Transmission Date: 20111010
  Serious: Yes (Hospitalization, Disabling, Other)
  Sender: FDA-Public Use
  Company Number: US-PFIZER INC-2010019053

PATIENT
  Sex: Female

DRUGS (15)
  1. ZOCOR [Concomitant]
     Indication: BLOOD CHOLESTEROL INCREASED
     Dosage: UNK
     Dates: start: 20030101
  2. ARTHROTEC [Concomitant]
     Indication: BACK PAIN
     Dosage: UNK
     Dates: start: 20040101
  3. TRAMADOL [Concomitant]
     Indication: BACK PAIN
  4. CHANTIX [Suspect]
     Indication: SMOKING CESSATION THERAPY
     Dosage: 0.5 MG/1MG
     Route: 048
     Dates: start: 20080202, end: 20080228
  5. ISOSORBIDE [Concomitant]
     Indication: CHEST PAIN
     Dosage: UNK
     Dates: start: 20040101
  6. HYDROCODONE [Concomitant]
     Indication: BACK PAIN
  7. DICLOFENAC [Concomitant]
     Indication: BACK PAIN
     Dosage: UNK
     Dates: start: 20040101
  8. LIPITOR [Concomitant]
     Indication: BLOOD CHOLESTEROL INCREASED
     Dosage: UNK
     Dates: start: 20030101
  9. FELDENE [Concomitant]
     Indication: BACK PAIN
     Dosage: UNK
     Dates: start: 20040101
  10. FELDENE [Concomitant]
     Indication: INFLAMMATION
  11. TRAMADOL [Concomitant]
     Indication: NECK PAIN
     Dosage: UNK
     Dates: start: 20050101
  12. ARTHROTEC [Concomitant]
     Indication: INFLAMMATION
  13. HYDROCODONE [Concomitant]
     Indication: NECK PAIN
     Dosage: UNK
     Dates: start: 20050101
  14. DICLOFENAC [Concomitant]
     Indication: INFLAMMATION
  15. XANAX [Concomitant]
     Indication: ANXIETY
     Dosage: UNK
     Dates: start: 19910101

REACTIONS (6)
  - DEPRESSION [None]
  - SUICIDAL IDEATION [None]
  - ABNORMAL BEHAVIOUR [None]
  - AGGRESSION [None]
  - ANXIETY [None]
  - AGITATION [None]
